FAERS Safety Report 13453992 (Version 1)
Quarter: 2017Q2

REPORT INFORMATION
  Report Type: Spontaneous
  Country: US (occurrence: US)
  Receive Date: 20170418
  Receipt Date: 20170418
  Transmission Date: 20170830
  Serious: No
  Sender: FDA-Public Use
  Company Number: US-ALLERGAN-1676031US

PATIENT
  Sex: Male

DRUGS (3)
  1. TEMOZOLOMIDE. [Concomitant]
     Active Substance: TEMOZOLOMIDE
     Indication: INTRAOCULAR PRESSURE INCREASED
     Dosage: UNK
     Route: 047
  2. TIMOLOL. [Concomitant]
     Active Substance: TIMOLOL
     Indication: INTRAOCULAR PRESSURE INCREASED
     Dosage: UNK
     Route: 047
  3. LUMIGAN [Suspect]
     Active Substance: BIMATOPROST
     Indication: INTRAOCULAR PRESSURE INCREASED
     Dosage: 2 GTT, QHS
     Route: 047
     Dates: start: 20161110, end: 20161111

REACTIONS (2)
  - Eye irritation [Unknown]
  - Ocular hyperaemia [Unknown]

NARRATIVE: CASE EVENT DATE: 20161111
